FAERS Safety Report 8444049-0 (Version None)
Quarter: 2012Q2

REPORT INFORMATION
  Report Type: 
  Country: None (occurrence: None)
  Receive Date: 20120618
  Receipt Date: 20120608
  Transmission Date: 20120825
  Serious: Yes (Other)
  Sender: FDA-Public Use
  Company Number: GB-SANOFI-AVENTIS-2012SA041359

PATIENT
  Age: 83 Year
  Sex: Female
  Weight: 50 kg

DRUGS (3)
  1. CITALOPRAM [Concomitant]
     Indication: ANXIETY
     Dosage: DOSE: 10 (UNITS UNSPECIFIED)
  2. SIMVASTATIN [Suspect]
     Dosage: DOSE: 40 (UNITS UNSPECIFIED)
     Route: 065
     Dates: start: 20120504, end: 20120518
  3. CLOPIDOGREL BISULFATE [Suspect]
     Dosage: DOSE: 75 (UNITS UNSPECIFIED)
     Route: 065
     Dates: start: 20120504, end: 20120518

REACTIONS (2)
  - PANIC ATTACK [None]
  - ANXIETY [None]
